FAERS Safety Report 7138175-6 (Version None)
Quarter: 2010Q4

REPORT INFORMATION
  Report Type: 
  Country: None (occurrence: None)
  Receive Date: 20101202
  Receipt Date: 20101202
  Transmission Date: 20110411
  Serious: Yes (Death)
  Sender: FDA-Public Use
  Company Number: None

PATIENT
  Age: 64 Year
  Sex: Male

DRUGS (9)
  1. REVLIMID [Suspect]
     Indication: MULTIPLE MYELOMA
     Dosage: 5MG DAILY ORALLY
     Route: 048
     Dates: start: 20071101, end: 20100201
  2. VICODIN [Concomitant]
  3. MINOXIDIL [Concomitant]
  4. PLENDIL [Concomitant]
  5. LOPRESSOR [Concomitant]
  6. EPOGEN [Concomitant]
  7. INSULIN [Concomitant]
  8. SEVELAMER [Concomitant]
  9. ACTOS [Concomitant]

REACTIONS (1)
  - ADVERSE EVENT [None]
